FAERS Safety Report 9843001 (Version 1)
Quarter: 2014Q1

REPORT INFORMATION
  Report Type: Spontaneous
  Country: FR (occurrence: FR)
  Receive Date: 20140124
  Receipt Date: 20140124
  Transmission Date: 20141002
  Serious: Yes (Hospitalization, Other)
  Sender: FDA-Public Use
  Company Number: FR-B.I. PHARMACEUTICALS,INC./RIDGEFIELD-2014-BI-02692FF

PATIENT
  Age: 51 Year
  Sex: Female

DRUGS (4)
  1. VIRAMUNE [Suspect]
     Indication: HIV TEST POSITIVE
     Dosage: 400 MG
     Route: 048
     Dates: start: 199806, end: 199807
  2. AMLOR [Concomitant]
  3. ZERIT 40MG [Concomitant]
  4. EPIVIR 150MG [Concomitant]

REACTIONS (4)
  - Hepatocellular injury [Recovered/Resolved]
  - Renal failure acute [Recovered/Resolved]
  - Cholestasis [Recovered/Resolved]
  - Hepatosplenomegaly [Recovered/Resolved]
